FAERS Safety Report 24731250 (Version 2)
Quarter: 2025Q1

REPORT INFORMATION
  Report Type: Report from Study
  Country: US (occurrence: US)
  Receive Date: 20241213
  Receipt Date: 20250204
  Transmission Date: 20250409
  Serious: Yes (Hospitalization)
  Sender: ABBVIE
  Company Number: US-ABBVIE-6042565

PATIENT
  Age: 83 Year
  Sex: Male

DRUGS (2)
  1. VENCLEXTA [Suspect]
     Active Substance: VENETOCLAX
     Indication: Acute myeloid leukaemia
     Route: 048
     Dates: start: 20220117
  2. VENCLEXTA [Suspect]
     Active Substance: VENETOCLAX
     Indication: Acute myeloid leukaemia
     Dosage: 1 TABLETS BY MOUTH ONCE DAILY WITH BREAKFAST DAYS 1-7 OF 35-DAY
     Route: 048
     Dates: start: 202205

REACTIONS (4)
  - Road traffic accident [Unknown]
  - Platelet count abnormal [Unknown]
  - Lower limb fracture [Unknown]
  - Fatigue [Unknown]

NARRATIVE: CASE EVENT DATE: 20240901
